FAERS Safety Report 4951370-7 (Version None)
Quarter: 2006Q1

REPORT INFORMATION
  Report Type: 
  Country: None (occurrence: None)
  Receive Date: 20060323
  Receipt Date: 20060223
  Transmission Date: 20060701
  Serious: Yes (Other)
  Sender: FDA-Public Use
  Company Number: PHRM2006AU00877

PATIENT
  Age: 69 Year
  Sex: Female

DRUGS (2)
  1. RIVOTRIL [Concomitant]
     Indication: EPILEPSY
     Route: 065
     Dates: start: 19810101
  2. FEMARA [Suspect]
     Route: 065
     Dates: start: 20030101

REACTIONS (4)
  - CENTRAL OBESITY [None]
  - INGUINAL HERNIA REPAIR [None]
  - PALPITATIONS [None]
  - WEIGHT INCREASED [None]
